FAERS Safety Report 26095273 (Version 1)
Quarter: 2025Q4

REPORT INFORMATION
  Report Type: Report from Study
  Country: US (occurrence: US)
  Receive Date: 20251127
  Receipt Date: 20251127
  Transmission Date: 20260118
  Serious: Yes (Hospitalization)
  Sender: ABBVIE
  Company Number: US-ABBVIE-6563211

PATIENT
  Sex: Female

DRUGS (2)
  1. HUMIRA [Suspect]
     Active Substance: ADALIMUMAB
     Indication: Product used for unknown indication
     Dosage: CITRATE FREE
     Route: 058
     Dates: start: 20220901, end: 20250701
  2. AMJEVITA [Concomitant]
     Active Substance: ADALIMUMAB-ATTO
     Indication: Product used for unknown indication
     Dates: start: 20250715

REACTIONS (1)
  - Lung disorder [Recovered/Resolved]
